FAERS Safety Report 12700833 (Version 3)
Quarter: 2017Q1

REPORT INFORMATION
  Report Type: Report from Study
  Country: US (occurrence: US)
  Receive Date: 20160830
  Receipt Date: 20170224
  Transmission Date: 20170428
  Serious: Yes (Hospitalization, Other)
  Sender: FDA-Public Use
  Company Number: US-AMGEN-USASL2016111119

PATIENT
  Age: 46 Year
  Sex: Female
  Weight: 47.62 kg

DRUGS (4)
  1. ENBREL [Suspect]
     Active Substance: ETANERCEPT
     Dosage: 50 MG, UNK
     Route: 065
     Dates: end: 2012
  2. ENBREL [Suspect]
     Active Substance: ETANERCEPT
     Indication: RHEUMATOID ARTHRITIS
     Dosage: 25 MG, QWK
     Route: 065
     Dates: start: 2006
  3. ENBREL [Suspect]
     Active Substance: ETANERCEPT
     Dosage: UNK
     Route: 065
  4. PREDNISONE. [Suspect]
     Active Substance: PREDNISONE
     Indication: PRODUCT USED FOR UNKNOWN INDICATION
     Route: 065

REACTIONS (20)
  - Nausea [Unknown]
  - Gastrointestinal disorder [Unknown]
  - Weight fluctuation [Unknown]
  - Gastric ulcer [Recovering/Resolving]
  - Fracture [Unknown]
  - Abdominoplasty [Unknown]
  - Influenza [Unknown]
  - Pain [Unknown]
  - Blood albumin abnormal [Not Recovered/Not Resolved]
  - Post procedural sepsis [Unknown]
  - Peritonitis [Unknown]
  - Osteonecrosis [Recovering/Resolving]
  - Road traffic accident [Unknown]
  - Hernia [Unknown]
  - Drug dose omission [Unknown]
  - Hiatus hernia [Recovering/Resolving]
  - Large intestine perforation [Unknown]
  - Pleural effusion [Unknown]
  - Appendicectomy [Unknown]
  - Feeling abnormal [Unknown]

NARRATIVE: CASE EVENT DATE: 201308
